FAERS Safety Report 5677912-4 (Version None)
Quarter: 2008Q1

REPORT INFORMATION
  Report Type: 
  Country: None (occurrence: None)
  Receive Date: 20080319
  Receipt Date: 20080304
  Transmission Date: 20080703
  Serious: Yes (Death, Hospitalization)
  Sender: FDA-Public Use
  Company Number: 230193M07USA

PATIENT
  Age: 65 Year
  Sex: Male
  Weight: 74.3899 kg

DRUGS (15)
  1. REBIF [Suspect]
     Indication: MULTIPLE SCLEROSIS
     Dosage: 44 MCG, 3 IN 1 WEEKS, SUBCUTANEOUS
     Route: 058
     Dates: start: 20070504, end: 20080201
  2. LASIX [Concomitant]
  3. ALDACTONE [Concomitant]
  4. ASPIRIN [Concomitant]
  5. COREG [Concomitant]
  6. ALLOPURINOL [Concomitant]
  7. LEVOTHYROXINE SODIUM [Concomitant]
  8. PLAVIX [Concomitant]
  9. LIPITOR [Concomitant]
  10. CAPTOPRIL [Concomitant]
  11. XANAX [Concomitant]
  12. NITROGLYCERIN [Concomitant]
  13. NITROGLYCERIN [Concomitant]
  14. ZANAFLEX [Concomitant]
  15. MULTIVITAMIN (MULTIVITAMIN) [Concomitant]

REACTIONS (6)
  - ABDOMINAL DISCOMFORT [None]
  - ABDOMINAL PAIN [None]
  - CARDIAC FAILURE [None]
  - CHEST PAIN [None]
  - INTESTINAL PERFORATION [None]
  - MALAISE [None]
